FAERS Safety Report 6808527-X (Version None)
Quarter: 2010Q2

REPORT INFORMATION
  Report Type: 
  Country: None (occurrence: None)
  Receive Date: 20100629
  Receipt Date: 20090710
  Transmission Date: 20101027
  Serious: Yes (Other)
  Sender: FDA-Public Use
  Company Number: US-PFIZER INC-2009219801

PATIENT
  Sex: Female
  Weight: 81.179 kg

DRUGS (2)
  1. BEXTRA [Suspect]
     Dates: start: 19990101
  2. SYNTHROID [Concomitant]

REACTIONS (2)
  - GASTROOESOPHAGEAL REFLUX DISEASE [None]
  - HEART RATE IRREGULAR [None]
